FAERS Safety Report 22032989 (Version 1)
Quarter: 2023Q1

REPORT INFORMATION
  Report Type: Spontaneous
  Country: US (occurrence: None)
  Receive Date: 20230221
  Receipt Date: 20230221
  Transmission Date: 20230418
  Serious: No
  Sender: FDA-Public Use
  Company Number: None

PATIENT
  Age: 75 Year
  Sex: Male
  Weight: 81.51 kg

DRUGS (10)
  1. RETACRIT [Suspect]
     Active Substance: EPOETIN ALFA-EPBX
     Indication: Colon cancer
     Dosage: OTHER STRENGTH : 40000 UNITS/ML;?FREQUENCY : EVERY OTHER WEEK;?
     Route: 058
  2. DULOXETINE [Concomitant]
     Active Substance: DULOXETINE
  3. FREESTYLELIBRE 2 SENSOR [Concomitant]
  4. GABAPENTIN [Concomitant]
     Active Substance: GABAPENTIN
  5. LISINOPRIL [Concomitant]
     Active Substance: LISINOPRIL
  6. METOFRMIN [Concomitant]
  7. MVASI [Concomitant]
     Active Substance: BEVACIZUMAB-AWWB
  8. PROCHLORPERAZINE [Concomitant]
     Active Substance: PROCHLORPERAZINE
  9. SIMVASTATIN [Concomitant]
     Active Substance: SIMVASTATIN
  10. TAMSULOSIN [Concomitant]
     Active Substance: TAMSULOSIN

REACTIONS (1)
  - Death [None]
